FAERS Safety Report 26189759 (Version 1)
Quarter: 2025Q4

REPORT INFORMATION
  Report Type: Spontaneous
  Country: US (occurrence: US)
  Receive Date: 20251223
  Receipt Date: 20251223
  Transmission Date: 20260117
  Serious: No
  Sender: LEO PHARM
  Company Number: US-LEO Pharma-385092

PATIENT
  Age: 14 Year
  Sex: Female

DRUGS (1)
  1. ADBRY [Suspect]
     Active Substance: TRALOKINUMAB-LDRM
     Indication: Eczema
     Dosage: 150 MG ON DAY 1 SUBCUTANEOUSLY; DISCONTINUED ON AN UNKNOWN DATE
     Route: 058
     Dates: start: 202511

REACTIONS (2)
  - Dry skin [Recovering/Resolving]
  - Ocular hyperaemia [Recovering/Resolving]

NARRATIVE: CASE EVENT DATE: 20251101
